FAERS Safety Report 8193818-3 (Version None)
Quarter: 2012Q1

REPORT INFORMATION
  Report Type: 
  Country: None (occurrence: None)
  Receive Date: 20120308
  Receipt Date: 20120301
  Transmission Date: 20120608
  Serious: Yes (Other)
  Sender: FDA-Public Use
  Company Number: PHHY2012GB017951

PATIENT
  Age: 80 Year
  Sex: Female

DRUGS (2)
  1. ANASTROZOLE [Suspect]
     Indication: BREAST CANCER
     Dosage: 1 MG, QD
     Route: 048
     Dates: start: 20111001, end: 20111001
  2. ARIMIDEX [Concomitant]
     Dosage: 1 MG, QD

REACTIONS (2)
  - PALPITATIONS [None]
  - DYSPNOEA [None]
